FAERS Safety Report 19932000 (Version 2)
Quarter: 2021Q4

REPORT INFORMATION
  Report Type: Report from Study
  Country: None (occurrence: US)
  Receive Date: 20211007
  Receipt Date: 20211012
  Transmission Date: 20220304
  Serious: Yes (Other)
  Sender: FDA-Public Use
  Company Number: US-ABBVIE-21K-163-4108617-00

PATIENT
  Sex: Female

DRUGS (1)
  1. SYNTHROID [Suspect]
     Active Substance: LEVOTHYROXINE SODIUM
     Indication: Product used for unknown indication
     Route: 048

REACTIONS (5)
  - Thyroid cancer [Unknown]
  - Chronic obstructive pulmonary disease [Unknown]
  - Blood test abnormal [Unknown]
  - Suffocation feeling [Unknown]
  - Dyspnoea [Unknown]

NARRATIVE: CASE EVENT DATE: 19970101
